FAERS Safety Report 12627719 (Version 2)
Quarter: 2016Q4

REPORT INFORMATION
  Report Type: Report from Study
  Country: None (occurrence: NL)
  Receive Date: 20160805
  Receipt Date: 20161007
  Transmission Date: 20170207
  Serious: Yes (Other)
  Sender: FDA-Public Use
  Company Number: NL-ABBVIE-16P-114-1694825-00

PATIENT
  Sex: Male
  Weight: 73 kg

DRUGS (2)
  1. DUODOPA [Suspect]
     Active Substance: CARBIDOPA\LEVODOPA
     Route: 050
     Dates: start: 201608
  2. DUODOPA [Suspect]
     Active Substance: CARBIDOPA\LEVODOPA
     Indication: PARKINSON^S DISEASE
     Dosage: MORNING DOSE: 11.0 CONTINUOUS DOSE: 3.1, EXTRA DOSE: 3.0
     Route: 050
     Dates: start: 20150924, end: 201608

REACTIONS (2)
  - Colon cancer [Unknown]
  - Underdose [Not Recovered/Not Resolved]
